FAERS Safety Report 6179612-3 (Version None)
Quarter: 2009Q2

REPORT INFORMATION
  Report Type: 
  Country: None (occurrence: None)
  Receive Date: 20090505
  Receipt Date: 20090423
  Transmission Date: 20091009
  Serious: Yes (Hospitalization)
  Sender: FDA-Public Use
  Company Number: US-PFIZER INC-2009194747

PATIENT
  Sex: Male
  Weight: 126.98 kg

DRUGS (4)
  1. BLINDED *PLACEBO [Suspect]
     Indication: PULMONARY HYPERTENSION
     Dosage: 20 MG, 3X/DAY
     Route: 048
     Dates: start: 20090225, end: 20090322
  2. BLINDED SILDENAFIL CITRATE [Suspect]
     Indication: PULMONARY HYPERTENSION
     Dosage: 20 MG, 3X/DAY
     Route: 048
     Dates: start: 20090225, end: 20090322
  3. BLINDED *PLACEBO [Suspect]
     Dosage: 20 MG, 3X/DAY
     Route: 048
     Dates: start: 20090401
  4. BLINDED SILDENAFIL CITRATE [Suspect]
     Dosage: 20 MG, 3X/DAY
     Route: 048
     Dates: start: 20090401

REACTIONS (1)
  - CARDIAC FAILURE CONGESTIVE [None]
